FAERS Safety Report 4408289-X (Version None)
Quarter: 2004Q3

REPORT INFORMATION
  Report Type: 
  Country: None (occurrence: None)
  Receive Date: 20040722
  Receipt Date: 20040709
  Transmission Date: 20050211
  Serious: Yes (Other)
  Sender: FDA-Public Use
  Company Number: US-JNJFOC-20040703003

PATIENT
  Age: 78 Year
  Sex: Female

DRUGS (13)
  1. INFLIXIMAB (INFLIXIMAB, RECOMBINANT) LYOPHILIZED POWDER [Suspect]
     Indication: RHEUMATOID ARTHRITIS
     Dosage: INTRAVENOUS
     Route: 042
     Dates: start: 20011025
  2. ALEVE [Concomitant]
  3. ALLEGRA [Concomitant]
  4. CARBIDOPA (CARBIDOPA) [Concomitant]
  5. CLONIDINE [Concomitant]
  6. FOLIC ACID [Concomitant]
  7. LISINOPRIL [Concomitant]
  8. METHOTREXATE SODIUM [Concomitant]
  9. MULTIVITAMIN (MULTIVITAMINS) [Concomitant]
  10. TRIAMTERENE AND HYDROCHLOROTHIAZID (DYAZIDE) [Concomitant]
  11. TYLENOL [Concomitant]
  12. GLUCOSAMINE CHONDROITIN (GLUCOSAMINE W/CHONDROITIN SULFATES) [Concomitant]
  13. CALCIUM WITH VITAMIN D (CALCIUM WITH VITAMIN D) [Concomitant]

REACTIONS (1)
  - PARAESTHESIA [None]
